FAERS Safety Report 5692953-9 (Version None)
Quarter: 2008Q2

REPORT INFORMATION
  Report Type: 
  Country: None (occurrence: None)
  Receive Date: 20080403
  Receipt Date: 20080326
  Transmission Date: 20081010
  Serious: Yes (Death)
  Sender: FDA-Public Use
  Company Number: FI-JNJFOC-20080306150

PATIENT
  Sex: Female

DRUGS (2)
  1. PARACETAMOL [Suspect]
  2. PARACETAMOL [Suspect]
     Indication: MALAISE

REACTIONS (2)
  - ARTERIOSCLEROSIS [None]
  - INCORRECT DRUG ADMINISTRATION DURATION [None]
